FAERS Safety Report 17646850 (Version 2)
Quarter: 2020Q3

REPORT INFORMATION
  Report Type: Spontaneous
  Country: JP (occurrence: JP)
  Receive Date: 20200408
  Receipt Date: 20200826
  Transmission Date: 20201102
  Serious: Yes (Hospitalization, Other)
  Sender: FDA-Public Use
  Company Number: JP-DSJP-DSJ-2020-110647

PATIENT
  Age: 7 Decade

DRUGS (3)
  1. LIXIANA TABLETS [Suspect]
     Active Substance: EDOXABAN TOSYLATE
     Indication: DEEP VEIN THROMBOSIS
     Dosage: UNK
     Route: 065
  2. RIFADIN [Suspect]
     Active Substance: RIFAMPIN
     Indication: ARTHRITIS
     Dosage: UNK
     Route: 065
  3. RIFADIN [Suspect]
     Active Substance: RIFAMPIN
     Indication: MUSCLE ABSCESS

REACTIONS (4)
  - Coagulopathy [Recovered/Resolved]
  - Renal failure [Unknown]
  - Vitamin K deficiency [Unknown]
  - Diarrhoea [Unknown]
